FAERS Safety Report 25953880 (Version 1)
Quarter: 2025Q4

REPORT INFORMATION
  Report Type: Spontaneous
  Country: US (occurrence: US)
  Receive Date: 20251023
  Receipt Date: 20251023
  Transmission Date: 20260118
  Serious: Yes (Other)
  Sender: COOPERSURGICAL
  Company Number: US-COOPERSURGICAL, INC.-2025CPS007423

PATIENT
  Age: 64 Year
  Sex: Female

DRUGS (1)
  1. PARAGARD T 380A [Suspect]
     Active Substance: COPPER
     Route: 015

REACTIONS (4)
  - Uterine polyp [Unknown]
  - Fatigue [Not Recovered/Not Resolved]
  - Device use issue [Recovered/Resolved]
  - Off label use [Unknown]
